FAERS Safety Report 5007946-4 (Version None)
Quarter: 2006Q2

REPORT INFORMATION
  Report Type: 
  Country: None (occurrence: None)
  Receive Date: 20060518
  Receipt Date: 20060426
  Transmission Date: 20061013
  Serious: Yes (Hospitalization)
  Sender: FDA-Public Use
  Company Number: CAO06000463

PATIENT
  Age: 61 Year
  Sex: Female
  Weight: 64.9 kg

DRUGS (8)
  1. METAMUCIL-2 [Suspect]
     Dosage: DOSE, 2/DAY, ORAL
     Route: 048
     Dates: start: 20060126
  2. LOSEC (OMEPRAZOLE MAGNESIUM) [Concomitant]
  3. MICARDIS [Concomitant]
  4. LACTULOSE [Concomitant]
  5. DALMANE [Concomitant]
  6. CELEXA [Concomitant]
  7. APO-BROMAZEPAM (BROMAZEPAM) [Concomitant]
  8. NAPROXEN [Concomitant]

REACTIONS (4)
  - ABDOMINAL DISTENSION [None]
  - DRUG INEFFECTIVE [None]
  - ECONOMIC PROBLEM [None]
  - FLANK PAIN [None]
